FAERS Safety Report 9827089 (Version 1)
Quarter: 2014Q1

REPORT INFORMATION
  Report Type: Spontaneous
  Country: US (occurrence: US)
  Receive Date: 20140117
  Receipt Date: 20140117
  Transmission Date: 20141002
  Serious: No
  Sender: FDA-Public Use
  Company Number: US-GLAXOSMITHKLINE-A1033964A

PATIENT
  Age: 50 Year
  Sex: Female

DRUGS (6)
  1. PROMACTA [Suspect]
     Indication: PLATELET COUNT DECREASED
     Dosage: 75MG PER DAY
     Route: 048
     Dates: start: 20120907
  2. PREDNISONE [Concomitant]
  3. LEVOTHYROXINE [Concomitant]
  4. OMEPRAZOLE [Concomitant]
  5. MULTIVITAMIN [Concomitant]
  6. ALENDRONATE [Concomitant]

REACTIONS (2)
  - Influenza [Not Recovered/Not Resolved]
  - Drug ineffective [Not Recovered/Not Resolved]
